FAERS Safety Report 19144978 (Version 1)
Quarter: 2021Q2

REPORT INFORMATION
  Report Type: Spontaneous
  Country: US (occurrence: US)
  Receive Date: 20210416
  Receipt Date: 20210416
  Transmission Date: 20210717
  Serious: Yes (Hospitalization, Other)
  Sender: FDA-Public Use
  Company Number: None

PATIENT
  Age: 71 Year
  Sex: Male
  Weight: 77.11 kg

DRUGS (12)
  1. CARVEDILOL. [Concomitant]
     Active Substance: CARVEDILOL
  2. TECHNETIUM TC99M PYP [Suspect]
     Active Substance: TECHNETIUM TC-99M PYROPHOSPHATE
     Dosage: DOSE OR AMOUNT: 10MCI
     Route: 042
  3. COLCHICINE. [Concomitant]
     Active Substance: COLCHICINE
  4. ELIQUIS [Concomitant]
     Active Substance: APIXABAN
  5. OMEPRAZOLE. [Concomitant]
     Active Substance: OMEPRAZOLE
  6. TORSEMIDE. [Concomitant]
     Active Substance: TORSEMIDE
  7. PROCARDIA XL [Concomitant]
     Active Substance: NIFEDIPINE
  8. BENAZEPRIL [Concomitant]
     Active Substance: BENAZEPRIL HYDROCHLORIDE
  9. ALLOPURINOL. [Concomitant]
     Active Substance: ALLOPURINOL
  10. ATORVASTATIN [Concomitant]
     Active Substance: ATORVASTATIN
  11. VIEGRA [Concomitant]
  12. NIFEDIPINE. [Concomitant]
     Active Substance: NIFEDIPINE

REACTIONS (3)
  - Unresponsive to stimuli [None]
  - Wheezing [None]
  - Hypoglycaemia [None]

NARRATIVE: CASE EVENT DATE: 20210407
